FAERS Safety Report 4781513-X (Version None)
Quarter: 2005Q3

REPORT INFORMATION
  Report Type: 
  Country: None (occurrence: None)
  Receive Date: 20050928
  Receipt Date: 20050418
  Transmission Date: 20060218
  Serious: Yes (Hospitalization)
  Sender: FDA-Public Use
  Company Number: 2005UW14164

PATIENT
  Sex: Female

DRUGS (1)
  1. IRESSA [Suspect]
     Indication: NEOPLASM MALIGNANT
     Route: 048

REACTIONS (3)
  - HIP ARTHROPLASTY [None]
  - LUNG DISORDER [None]
  - PULMONARY OEDEMA [None]
